FAERS Safety Report 12912533 (Version 1)
Quarter: 2016Q4

REPORT INFORMATION
  Report Type: Spontaneous
  Country: US (occurrence: US)
  Receive Date: 20161104
  Receipt Date: 20161104
  Transmission Date: 20170207
  Serious: No
  Sender: FDA-Public Use
  Company Number: US-CHARTWELL LIFE SCIENCE LLC-2016CHA00018

PATIENT
  Sex: Female

DRUGS (17)
  1. DOXYCYCLINE HYCLATE. [Suspect]
     Active Substance: DOXYCYCLINE HYCLATE
     Indication: DYSPNOEA
  2. POTASSIUM [Concomitant]
     Active Substance: POTASSIUM
  3. DOXYCYCLINE HYCLATE. [Suspect]
     Active Substance: DOXYCYCLINE HYCLATE
     Indication: WHEEZING
  4. LOSARTAN. [Concomitant]
     Active Substance: LOSARTAN
  5. VITAMIN D3 [Concomitant]
     Active Substance: CHOLECALCIFEROL
  6. OS-CAL PLUS D [Concomitant]
  7. RECLAST [Concomitant]
     Active Substance: ZOLEDRONIC ACID
  8. COUGH SYRUP (^PREDMETH^) [Concomitant]
  9. PREDNISONE. [Concomitant]
     Active Substance: PREDNISONE
     Dosage: 5 MG, 1X/DAY
     Dates: start: 2016
  10. FOLIC ACID. [Concomitant]
     Active Substance: FOLIC ACID
  11. PROAIR HFA [Concomitant]
     Active Substance: ALBUTEROL SULFATE
  12. DOXYCYCLINE HYCLATE. [Suspect]
     Active Substance: DOXYCYCLINE HYCLATE
     Indication: NASOPHARYNGITIS
     Dosage: 100 MG, 2X/DAY
     Route: 048
     Dates: start: 2016, end: 2016
  13. BREO ELLIPTA [Concomitant]
     Active Substance: FLUTICASONE FUROATE\VILANTEROL TRIFENATATE
     Indication: CHRONIC OBSTRUCTIVE PULMONARY DISEASE
  14. XELJANZ [Concomitant]
     Active Substance: TOFACITINIB CITRATE
  15. PREDNISONE. [Concomitant]
     Active Substance: PREDNISONE
     Dosage: 6 DOSAGE UNITS, 1X/DAY
     Dates: start: 2016, end: 2016
  16. PREDNISONE. [Concomitant]
     Active Substance: PREDNISONE
     Dosage: TAPERED DOWN, AS DIRECTED
     Dates: start: 2016, end: 2016
  17. OXYGEN. [Concomitant]
     Active Substance: OXYGEN

REACTIONS (2)
  - Drug ineffective [Not Recovered/Not Resolved]
  - Incorrect drug administration duration [Unknown]

NARRATIVE: CASE EVENT DATE: 2016
